FAERS Safety Report 8597766-6 (Version None)
Quarter: 2012Q3

REPORT INFORMATION
  Report Type: 
  Country: None (occurrence: None)
  Receive Date: 20120816
  Receipt Date: 20120813
  Transmission Date: 20120928
  Serious: Yes (Hospitalization)
  Sender: FDA-Public Use
  Company Number: PHHY2012AR070208

PATIENT
  Sex: Male

DRUGS (1)
  1. STALEVO 100 [Suspect]
     Indication: PARKINSON'S DISEASE
     Dosage: 6 DF, DAILY

REACTIONS (3)
  - OESOPHAGEAL OBSTRUCTION [None]
  - PARKINSON'S DISEASE [None]
  - VOMITING [None]
